FAERS Safety Report 16278595 (Version 3)
Quarter: 2019Q2

REPORT INFORMATION
  Report Type: Spontaneous
  Country: JP (occurrence: JP)
  Receive Date: 20190506
  Receipt Date: 20190506
  Transmission Date: 20190711
  Serious: Yes (Death, Hospitalization)
  Sender: FDA-Public Use
  Company Number: PHHY2019JP102600

PATIENT
  Age: 76 Year
  Sex: Female

DRUGS (4)
  1. METHOTREXATE. [Suspect]
     Active Substance: METHOTREXATE
     Indication: RHEUMATOID ARTHRITIS
     Route: 065
  2. PREDNISOLONE. [Suspect]
     Active Substance: PREDNISOLONE
     Indication: RHEUMATOID ARTHRITIS
     Dosage: 5 MG, UNK
     Route: 065
  3. CELECOXIB. [Suspect]
     Active Substance: CELECOXIB
     Indication: RHEUMATOID ARTHRITIS
     Route: 065
  4. PREDNISOLONE. [Suspect]
     Active Substance: PREDNISOLONE
     Dosage: 30 MG, QD
     Route: 065

REACTIONS (19)
  - Blister [Unknown]
  - Abdominal pain upper [Unknown]
  - Swelling [Unknown]
  - Renal impairment [Unknown]
  - Cytomegalovirus infection [Recovering/Resolving]
  - Clostridium difficile infection [Recovering/Resolving]
  - Constipation [Unknown]
  - Shock [Unknown]
  - Renal failure [Fatal]
  - Skin ulcer [Recovering/Resolving]
  - Megacolon [Recovering/Resolving]
  - Erythema [Unknown]
  - Pyrexia [Unknown]
  - Tachycardia [Unknown]
  - Acute kidney injury [Unknown]
  - Cellulitis [Unknown]
  - Disseminated cryptococcosis [Recovering/Resolving]
  - Haemophagocytic lymphohistiocytosis [Recovering/Resolving]
  - Altered state of consciousness [Unknown]
